FAERS Safety Report 6190732-X (Version None)
Quarter: 2009Q2

REPORT INFORMATION
  Report Type: 
  Country: None (occurrence: None)
  Receive Date: 20090514
  Receipt Date: 20090505
  Transmission Date: 20091009
  Serious: Yes (Hospitalization)
  Sender: FDA-Public Use
  Company Number: DE-ELI_LILLY_AND_COMPANY-DE200904002004

PATIENT
  Age: 73 Year
  Sex: Female

DRUGS (5)
  1. BYETTA [Suspect]
     Indication: DIABETES MELLITUS
     Dosage: 10 UG, 2/D
     Route: 065
     Dates: start: 20090406, end: 20090407
  2. PANTOZOL [Concomitant]
     Dosage: 40 MG, 2/D
  3. SIMVASTATIN [Concomitant]
     Dosage: 10 MG, QOD
  4. NEBILET [Concomitant]
     Dosage: 5 MG, QOD
  5. NULYTELY [Concomitant]
     Dosage: UNK, QOD

REACTIONS (3)
  - CONFUSIONAL STATE [None]
  - DIPLOPIA [None]
  - NAUSEA [None]
